FAERS Safety Report 16261634 (Version 3)
Quarter: 2019Q2

REPORT INFORMATION
  Report Type: Spontaneous
  Country: US (occurrence: US)
  Receive Date: 20190501
  Receipt Date: 20190621
  Transmission Date: 20190711
  Serious: Yes (Other)
  Sender: FDA-Public Use
  Company Number: US-PFIZER INC-2019183386

PATIENT
  Age: 48 Year
  Sex: Female

DRUGS (1)
  1. LYRICA [Suspect]
     Active Substance: PREGABALIN
     Dosage: UNK

REACTIONS (6)
  - Limb discomfort [Unknown]
  - Major depression [Unknown]
  - Paraesthesia [Unknown]
  - Pain in extremity [Unknown]
  - Post-traumatic stress disorder [Unknown]
  - Tremor [Not Recovered/Not Resolved]
